FAERS Safety Report 22624705 (Version 1)
Quarter: 2023Q2

REPORT INFORMATION
  Report Type: Spontaneous
  Country: SI (occurrence: SI)
  Receive Date: 20230621
  Receipt Date: 20230621
  Transmission Date: 20230722
  Serious: Yes (Other)
  Sender: FDA-Public Use
  Company Number: SI-009507513-2306SVN007804

PATIENT
  Age: 58 Year
  Sex: Male

DRUGS (1)
  1. PEMBROLIZUMAB [Suspect]
     Active Substance: PEMBROLIZUMAB
     Indication: Metastatic malignant melanoma
     Dosage: 200 MILLIGRAM
     Dates: start: 201806

REACTIONS (10)
  - Multiple organ dysfunction syndrome [Unknown]
  - Septic shock [Unknown]
  - Toxic epidermal necrolysis [Unknown]
  - Acquired epidermolysis bullosa [Unknown]
  - Pemphigus [Unknown]
  - Cellulitis [Unknown]
  - Radiotherapy [Unknown]
  - Oedema [Unknown]
  - Osteolysis [Unknown]
  - Axillary mass [Unknown]

NARRATIVE: CASE EVENT DATE: 20180601
